FAERS Safety Report 7042075 (Version 6)
Quarter: 2012Q4

REPORT INFORMATION
  Report Type: 
  Country: CA (occurrence: CA)
  Receive Date: 20090706
  Receipt Date: 20121106
  Transmission Date: 20130627
  Serious: Yes (Hospitalization, Other)
  Sender: FDA-Public Use
  Company Number: PHHY2009CA04691

PATIENT
  Sex: Male

DRUGS (1)
  1. SANDOSTATIN LAR [Suspect]
     Indication: HEPATIC NEOPLASM MALIGNANT
     Dosage: 30 mg, Every 4 weeks
     Route: 030
     Dates: start: 20080919, end: 20091113

REACTIONS (10)
  - Fall [Unknown]
  - Chest pain [Unknown]
  - Blood pressure diastolic decreased [Unknown]
  - Gastric haemorrhage [Unknown]
  - Disease progression [Unknown]
  - Hypertension [Unknown]
  - Injection site pain [Unknown]
  - Flatulence [Unknown]
  - Heart rate decreased [Unknown]
  - Rash [Unknown]
